FAERS Safety Report 8543921-0 (Version None)
Quarter: 2012Q3

REPORT INFORMATION
  Report Type: 
  Country: None (occurrence: None)
  Receive Date: 20120727
  Receipt Date: 20120718
  Transmission Date: 20120928
  Serious: Yes (Hospitalization)
  Sender: FDA-Public Use
  Company Number: JP-SANOFI-AVENTIS-2012SA037135

PATIENT
  Age: 80 Year
  Sex: Male
  Weight: 48 kg

DRUGS (7)
  1. GIMERACIL/OTERACIL POTASSIUM/TEGAFUR [Suspect]
     Indication: GASTRIC CANCER
     Route: 048
     Dates: start: 20110905
  2. GIMERACIL/OTERACIL POTASSIUM/TEGAFUR [Suspect]
     Route: 048
     Dates: start: 20120518, end: 20120525
  3. GIMERACIL/OTERACIL POTASSIUM/TEGAFUR [Suspect]
     Dosage: CYCLE: 2-6
     Route: 048
     Dates: start: 20110926
  4. GIMERACIL/OTERACIL POTASSIUM/TEGAFUR [Suspect]
     Dosage: CYCLE: 7-10
     Route: 048
     Dates: start: 20120302, end: 20120515
  5. OXALIPLATIN [Suspect]
     Indication: GASTRIC CANCER
     Dosage: CYCLE: 1-2
     Route: 041
     Dates: start: 20110905, end: 20110926
  6. OXALIPLATIN [Suspect]
     Dosage: CYCLE: 3-6
     Route: 041
     Dates: start: 20111031, end: 20120127
  7. OXALIPLATIN [Suspect]
     Dosage: CYCLE: 7-10
     Route: 041
     Dates: start: 20120302, end: 20120511

REACTIONS (1)
  - HYDRONEPHROSIS [None]
